FAERS Safety Report 4892321-3 (Version None)
Quarter: 2006Q1

REPORT INFORMATION
  Report Type: 
  Country: None (occurrence: None)
  Receive Date: 20060126
  Receipt Date: 20050920
  Transmission Date: 20060701
  Serious: Yes (Death, Hospitalization)
  Sender: FDA-Public Use
  Company Number: US-GLAXOSMITHKLINE-A0575054A

PATIENT
  Age: 71 Year
  Sex: Male

DRUGS (7)
  1. ADVAIR DISKUS 100/50 [Suspect]
     Indication: CHRONIC OBSTRUCTIVE PULMONARY DISEASE
     Dosage: 1PUFF TWICE PER DAY
     Route: 055
     Dates: start: 20050401
  2. DUONEB [Concomitant]
  3. LASIX [Concomitant]
  4. COUMADIN [Concomitant]
  5. ALTACE [Concomitant]
  6. COREG [Concomitant]
  7. NORVASC [Concomitant]

REACTIONS (14)
  - APHONIA [None]
  - CANDIDIASIS [None]
  - CHRONIC OBSTRUCTIVE PULMONARY DISEASE [None]
  - COMA [None]
  - CONTUSION [None]
  - DIZZINESS [None]
  - DYSPHONIA [None]
  - EMPHYSEMA [None]
  - HAEMORRHAGE [None]
  - HEADACHE [None]
  - LACRIMATION INCREASED [None]
  - PAIN [None]
  - RESPIRATORY FAILURE [None]
  - RHINORRHOEA [None]
